FAERS Safety Report 5439522-3 (Version None)
Quarter: 2007Q3

REPORT INFORMATION
  Report Type: 
  Country: None (occurrence: None)
  Receive Date: 20070831
  Receipt Date: 20070820
  Transmission Date: 20080115
  Serious: Yes (Other)
  Sender: FDA-Public Use
  Company Number: US-ROCHE-512454

PATIENT
  Age: 56 Year
  Sex: Female

DRUGS (4)
  1. PEG-INTERFERON A-2A (RO 25-8310) [Suspect]
     Route: 065
     Dates: start: 20070522
  2. RIBAVIRIN [Suspect]
     Route: 065
     Dates: start: 20070522
  3. LEVOTHYROXINE SODIUM [Concomitant]
     Dates: start: 20050801
  4. SEROQUEL [Concomitant]
     Indication: SOMNOLENCE

REACTIONS (6)
  - DEPRESSION [None]
  - DRUG DOSE OMISSION [None]
  - FATIGUE [None]
  - HEPATIC NEOPLASM MALIGNANT [None]
  - MEMORY IMPAIRMENT [None]
  - WEIGHT DECREASED [None]
